FAERS Safety Report 20125813 (Version 3)
Quarter: 2022Q1

REPORT INFORMATION
  Report Type: Report from Study
  Country: ES (occurrence: None)
  Receive Date: 20211129
  Receipt Date: 20220121
  Transmission Date: 20220423
  Serious: Yes (Other)
  Sender: FDA-Public Use
  Company Number: ES-ROCHE-2926846

PATIENT

DRUGS (12)
  1. TOCILIZUMAB [Suspect]
     Active Substance: TOCILIZUMAB
     Indication: COVID-19 pneumonia
     Dosage: DOSE AND FREQUENCY NOT REPORTED, TOTAL DOSE 400 MG
     Route: 042
     Dates: start: 20200830
  2. DEXAMETHASONE [Concomitant]
     Active Substance: DEXAMETHASONE
     Indication: Herpes zoster
  3. OMEPRAZOLE [Concomitant]
     Active Substance: OMEPRAZOLE
     Indication: Prophylaxis against gastrointestinal ulcer
     Dates: start: 20200827, end: 20200922
  4. METOCLOPRAMIDE [Concomitant]
     Active Substance: METOCLOPRAMIDE
     Indication: Vomiting
     Dates: start: 20200827, end: 20200917
  5. ENOXAPARIN [Concomitant]
     Active Substance: ENOXAPARIN
     Indication: Thrombosis prophylaxis
     Dates: start: 20200829, end: 20200927
  6. ASPIRIN [Concomitant]
     Active Substance: ASPIRIN
     Dates: start: 20190108
  7. TAMSULOSIN [Concomitant]
     Active Substance: TAMSULOSIN
     Indication: Benign prostatic hyperplasia
  8. DEXAMETHASONE [Concomitant]
     Active Substance: DEXAMETHASONE
     Indication: COVID-19
     Dates: start: 20200901, end: 20200915
  9. METHYLPREDNISOLONE [Concomitant]
     Active Substance: METHYLPREDNISOLONE
     Indication: COVID-19
     Dates: start: 20200829, end: 20200901
  10. CEFTRIAXONE [Concomitant]
     Active Substance: CEFTRIAXONE
     Indication: COVID-19
     Dates: start: 20200828, end: 20200908
  11. METAMIZOLE [Concomitant]
     Active Substance: METAMIZOLE
     Indication: COVID-19
     Dates: start: 20200827, end: 20200917
  12. ALBUTEROL [Concomitant]
     Active Substance: ALBUTEROL
     Indication: COVID-19
     Dates: start: 20200827, end: 20200901

REACTIONS (1)
  - Herpes zoster [Recovered/Resolved]

NARRATIVE: CASE EVENT DATE: 20200925
